FAERS Safety Report 21451496 (Version 2)
Quarter: 2023Q1

REPORT INFORMATION
  Report Type: Spontaneous
  Country: FR (occurrence: FR)
  Receive Date: 20221013
  Receipt Date: 20230105
  Transmission Date: 20230418
  Serious: Yes (Other)
  Sender: FDA-Public Use
  Company Number: None

PATIENT
  Age: 53 Year
  Sex: Male

DRUGS (7)
  1. LINEZOLID [Suspect]
     Active Substance: LINEZOLID
     Indication: Superinfection bacterial
     Route: 065
     Dates: start: 20220829, end: 20220905
  2. ISONIAZID [Suspect]
     Active Substance: ISONIAZID
     Indication: Tuberculosis
     Dates: start: 20220822, end: 20220907
  3. ETHAMBUTOL HYDROCHLORIDE [Suspect]
     Active Substance: ETHAMBUTOL HYDROCHLORIDE
     Indication: Tuberculosis
     Dosage: ETHAMBUTOL (CHLORHYDRATE D), DURATION : 15 DAYS
     Dates: start: 20220822, end: 20220906
  4. IMIPENEM [Suspect]
     Active Substance: IMIPENEM
     Indication: Superinfection bacterial
     Dates: start: 20220901, end: 20220902
  5. RIFAMPIN [Suspect]
     Active Substance: RIFAMPIN
     Indication: Tuberculosis
     Dates: start: 20220822, end: 20220907
  6. CILASTATIN SODIUM [Suspect]
     Active Substance: CILASTATIN SODIUM
     Indication: Superinfection bacterial
     Dosage: CILASTATINE SODIQUE,
     Dates: start: 20220901, end: 20220902
  7. AMBISOME [Suspect]
     Active Substance: AMPHOTERICIN B
     Indication: Superinfection fungal
     Dates: start: 20220901, end: 20220904

REACTIONS (3)
  - Liver disorder [Not Recovered/Not Resolved]
  - Pyrexia [Recovering/Resolving]
  - Skin exfoliation [Recovering/Resolving]

NARRATIVE: CASE EVENT DATE: 20220903
